FAERS Safety Report 20868582 (Version 13)
Quarter: 2023Q4

REPORT INFORMATION
  Report Type: Report from Study
  Country: US (occurrence: US)
  Receive Date: 20220524
  Receipt Date: 20231204
  Transmission Date: 20240110
  Serious: No
  Sender: FDA-Public Use
  Company Number: US-NOVARTISTESTPH-NVSC2022US119245

PATIENT
  Age: 41 Year
  Sex: Female

DRUGS (3)
  1. KESIMPTA [Suspect]
     Active Substance: OFATUMUMAB
     Indication: Multiple sclerosis
     Dosage: 20 MG, QMO
     Route: 058
     Dates: start: 20210406
  2. KESIMPTA [Suspect]
     Active Substance: OFATUMUMAB
     Dosage: 20 MG, QMO
     Route: 058
     Dates: start: 20210501
  3. KESIMPTA [Suspect]
     Active Substance: OFATUMUMAB
     Dosage: 20 MG, QMO
     Route: 058
     Dates: start: 20220501

REACTIONS (9)
  - COVID-19 [Recovered/Resolved]
  - Oropharyngeal pain [Unknown]
  - Brain fog [Unknown]
  - COVID-19 [Unknown]
  - Cough [Unknown]
  - Fatigue [Unknown]
  - Injection site pain [Unknown]
  - Therapeutic response shortened [Unknown]
  - Sunburn [Unknown]

NARRATIVE: CASE EVENT DATE: 20220117
